FAERS Safety Report 7680408-1 (Version None)
Quarter: 2011Q3

REPORT INFORMATION
  Report Type: 
  Country: None (occurrence: None)
  Receive Date: 20110811
  Receipt Date: 20110811
  Transmission Date: 20111222
  Serious: Yes (Other)
  Sender: FDA-Public Use
  Company Number: None

PATIENT
  Sex: Male

DRUGS (1)
  1. CRESTOR [Suspect]
     Dosage: 10MG TABLET QD PO
     Route: 048
     Dates: start: 20110617, end: 20110623

REACTIONS (4)
  - FEELING ABNORMAL [None]
  - PAIN [None]
  - MYALGIA [None]
  - ILL-DEFINED DISORDER [None]
